FAERS Safety Report 21688443 (Version 1)
Quarter: 2022Q4

REPORT INFORMATION
  Report Type: Spontaneous
  Country: US (occurrence: US)
  Receive Date: 20221206
  Receipt Date: 20221206
  Transmission Date: 20230113
  Serious: No
  Sender: FDA-Public Use
  Company Number: US-MYLANLABS-2022M1134351

PATIENT
  Sex: Male

DRUGS (2)
  1. SEMGLEE (INSULIN GLARGINE-YFGN) [Suspect]
     Active Substance: INSULIN GLARGINE-YFGN
     Indication: Type 2 diabetes mellitus
     Dosage: 20 INTERNATIONAL UNIT, BID (10 UNITS IN THE MORNING AND 10 UNITS IN THE EVENING)
     Route: 065
  2. SEMGLEE (INSULIN GLARGINE-YFGN) [Suspect]
     Active Substance: INSULIN GLARGINE-YFGN
     Dosage: 20 INTERNATIONAL UNIT, BID (10 UNITS IN THE MORNING AND 10 UNITS IN THE EVENING)
     Route: 065

REACTIONS (3)
  - Device mechanical issue [Unknown]
  - Device information output issue [Unknown]
  - Wrong technique in device usage process [Unknown]
